FAERS Safety Report 4459056-2 (Version None)
Quarter: 2004Q3

REPORT INFORMATION
  Report Type: 
  Country: None (occurrence: None)
  Receive Date: 20040922
  Receipt Date: 20040922
  Transmission Date: 20050211
  Serious: Yes (Hospitalization)
  Sender: FDA-Public Use
  Company Number: None

PATIENT
  Age: 59 Year
  Sex: Female
  Weight: 66 kg

DRUGS (3)
  1. PHENYTOIN [Suspect]
     Indication: CONVULSION
     Dosage: 100 MG TID PO
     Route: 048
     Dates: end: 20040909
  2. PHENYTOIN [Suspect]
     Indication: ENDOMETRIAL CANCER
     Dosage: 100 MG TID PO
     Route: 048
     Dates: end: 20040909
  3. PHENYTOIN [Suspect]
     Indication: METASTASES TO CENTRAL NERVOUS SYSTEM
     Dosage: 100 MG TID PO
     Route: 048
     Dates: end: 20040909

REACTIONS (3)
  - PAIN [None]
  - PYREXIA [None]
  - RASH GENERALISED [None]
